FAERS Safety Report 11896763 (Version 2)
Quarter: 2016Q1

REPORT INFORMATION
  Report Type: Spontaneous
  Country: US (occurrence: US)
  Receive Date: 20160107
  Receipt Date: 20160128
  Transmission Date: 20160526
  Serious: Yes (Other)
  Sender: FDA-Public Use
  Company Number: US-BAYER-2016-002478

PATIENT
  Age: 92 Year
  Sex: Female

DRUGS (1)
  1. BAYER WOMENS [Suspect]
     Active Substance: ASPIRIN\CALCIUM CARBONATE
     Dosage: 1 DF, ONCE
     Route: 048

REACTIONS (2)
  - Dry throat [None]
  - Choking [Recovered/Resolved]

NARRATIVE: CASE EVENT DATE: 20160105
